FAERS Safety Report 19136856 (Version 3)
Quarter: 2021Q2

REPORT INFORMATION
  Report Type: Spontaneous
  Country: US (occurrence: US)
  Receive Date: 20210414
  Receipt Date: 20210505
  Transmission Date: 20210717
  Serious: No
  Sender: FDA-Public Use
  Company Number: US-ELI_LILLY_AND_COMPANY-US202104004183

PATIENT
  Age: 24 Year
  Sex: Female
  Weight: 61.22 kg

DRUGS (4)
  1. TADALAFIL. [Suspect]
     Active Substance: TADALAFIL
     Indication: PRODUCT USED FOR UNKNOWN INDICATION
     Dosage: 40 MG, UNKNOWN
     Route: 065
  2. REMODULIN [Suspect]
     Active Substance: TREPROSTINIL
     Indication: PULMONARY ARTERIAL HYPERTENSION
     Dosage: 38 NG/KG/MIN, CONTINUOUS
     Route: 042
     Dates: start: 20210329
  3. AMBRISENTAN [Suspect]
     Active Substance: AMBRISENTAN
     Indication: PRODUCT USED FOR UNKNOWN INDICATION
     Dosage: UNK UNK, UNKNOWN
     Route: 065
     Dates: start: 20210330
  4. TREPROSTINIL SODIUM [Suspect]
     Active Substance: TREPROSTINIL SODIUM
     Indication: PULMONARY ARTERIAL HYPERTENSION
     Dosage: 0.038 UG/KG, UNKNOWN
     Route: 042
     Dates: start: 20210323

REACTIONS (8)
  - Fatigue [Recovered/Resolved]
  - Dizziness [Unknown]
  - Pain in jaw [Recovered/Resolved]
  - Hypotension [Recovered/Resolved]
  - Myalgia [Recovered/Resolved]
  - Flushing [Unknown]
  - Asthenia [Unknown]
  - Headache [Recovered/Resolved]

NARRATIVE: CASE EVENT DATE: 202103
